FAERS Safety Report 8155193-X (Version None)
Quarter: 2012Q1

REPORT INFORMATION
  Report Type: 
  Country: None (occurrence: None)
  Receive Date: 20120222
  Receipt Date: 20120210
  Transmission Date: 20120608
  Serious: Yes (Hospitalization, Other)
  Sender: FDA-Public Use
  Company Number: US-BRISTOL-MYERS SQUIBB COMPANY-16395139

PATIENT
  Age: 42 Year
  Sex: Female
  Weight: 140 kg

DRUGS (15)
  1. ABILIFY [Suspect]
     Dosage: ALSO 2MG
     Route: 048
  2. TRILEPTAL [Concomitant]
  3. RITUXIMAB [Suspect]
     Indication: LYMPHOMA
     Dosage: 24AUG11-24AUG11 17AUG11:500MG/M2 8JUL11:750MG/M2 APR11-UNK:375MG/M2
     Route: 042
     Dates: start: 20110817, end: 20110824
  4. VITAMIN D [Concomitant]
  5. FISH OIL [Concomitant]
  6. DIPHENHYDRAMINE HCL [Concomitant]
     Dates: start: 20110817, end: 20110817
  7. TRAZODONE HCL [Concomitant]
  8. ZYRTEC [Concomitant]
  9. COUMADIN [Concomitant]
  10. ZOLOFT [Concomitant]
  11. ZEVALIN [Suspect]
     Indication: LYMPHOMA
     Dosage: 1DF=0.4MCL/KG ALSO 5.8MCL (17AUG11-24AUG2011).
     Route: 042
     Dates: start: 20110817, end: 20110824
  12. MULTI-VITAMIN [Concomitant]
  13. ACETAMINOPHEN [Concomitant]
     Dates: start: 20110817, end: 20110817
  14. CALCIUM [Concomitant]
  15. VITAMIN B6 [Concomitant]

REACTIONS (4)
  - APLASTIC ANAEMIA [None]
  - PANCYTOPENIA [None]
  - FEBRILE NEUTROPENIA [None]
  - EMOTIONAL DISORDER [None]
